FAERS Safety Report 13883583 (Version 2)
Quarter: 2017Q3

REPORT INFORMATION
  Report Type: Report from Study
  Country: US (occurrence: US)
  Receive Date: 20170819
  Receipt Date: 20170829
  Transmission Date: 20171127
  Serious: Yes (Other)
  Sender: FDA-Public Use
  Company Number: US-AMGEN-USASP2017123411

PATIENT
  Age: 94 Year
  Sex: Female

DRUGS (1)
  1. PROLIA [Suspect]
     Active Substance: DENOSUMAB
     Indication: PRODUCT USED FOR UNKNOWN INDICATION
     Dosage: UNK
     Route: 065

REACTIONS (7)
  - Adverse drug reaction [Unknown]
  - Visual impairment [Unknown]
  - Gait disturbance [Unknown]
  - Arthralgia [Unknown]
  - Bone pain [Unknown]
  - Toothache [Unknown]
  - Pain [Unknown]
